FAERS Safety Report 15728707 (Version 1)
Quarter: 2018Q4

REPORT INFORMATION
  Report Type: Spontaneous
  Country: US (occurrence: US)
  Receive Date: 20181214
  Receipt Date: 20181214
  Transmission Date: 20190205
  Serious: Yes (Disabling)
  Sender: FDA-Public Use
  Company Number: None

PATIENT
  Age: 32 Year
  Sex: Female
  Weight: 56.25 kg

DRUGS (1)
  1. CIPRO [Suspect]
     Active Substance: CIPROFLOXACIN HYDROCHLORIDE
     Indication: CONGENITAL CYSTIC KIDNEY DISEASE
     Dosage: ?          QUANTITY:1 TABLET(S);?

REACTIONS (7)
  - Irritable bowel syndrome [None]
  - Palpitations [None]
  - Pain [None]
  - Fibromyalgia [None]
  - Depression [None]
  - Anxiety [None]
  - Tendonitis [None]

NARRATIVE: CASE EVENT DATE: 20091205
